FAERS Safety Report 15117884 (Version 1)
Quarter: 2018Q3

REPORT INFORMATION
  Report Type: Spontaneous
  Country: BR (occurrence: BR)
  Receive Date: 20180707
  Receipt Date: 20180707
  Transmission Date: 20181010
  Serious: Yes (Other)
  Sender: FDA-Public Use
  Company Number: BR-TORRENT-00004484

PATIENT
  Age: 74 Year
  Sex: Male
  Weight: 70 kg

DRUGS (4)
  1. NIMODIPINE. [Concomitant]
     Active Substance: NIMODIPINE
     Indication: ISCHAEMIC STROKE
     Dosage: UNKNOWN
     Route: 048
     Dates: start: 201707
  2. LAMITOR CD [Suspect]
     Active Substance: LAMOTRIGINE
     Indication: EPILEPSY
     Dosage: UNKNOWN
     Dates: start: 20180622, end: 20180624
  3. CAPTOPRIL. [Concomitant]
     Active Substance: CAPTOPRIL
     Indication: HYPERTENSION
     Dosage: TWO TABLETS DAILY
     Route: 048
     Dates: start: 2010
  4. LAMITOR [Suspect]
     Active Substance: LAMOTRIGINE
     Indication: EPILEPSY
     Dosage: ONE TABLET DAILY
     Route: 048
     Dates: start: 201707, end: 20180621

REACTIONS (6)
  - Vision blurred [Not Recovered/Not Resolved]
  - Drug dispensing error [Unknown]
  - Visual impairment [Not Recovered/Not Resolved]
  - Eyelid oedema [Not Recovered/Not Resolved]
  - Blister [Not Recovered/Not Resolved]
  - Eyelid irritation [Not Recovered/Not Resolved]

NARRATIVE: CASE EVENT DATE: 20180622
